FAERS Safety Report 4384596-4 (Version None)
Quarter: 2004Q2

REPORT INFORMATION
  Report Type: 
  Country: None (occurrence: None)
  Receive Date: 20040625
  Receipt Date: 20040617
  Transmission Date: 20050107
  Serious: Yes (Life-Threatening)
  Sender: FDA-Public Use
  Company Number: PHBS2004IT07984

PATIENT
  Age: 79 Year
  Sex: Male

DRUGS (6)
  1. PROMETAX [Suspect]
     Indication: DEMENTIA ALZHEIMER'S TYPE
     Dosage: 4.5 MG, BID
     Route: 048
     Dates: start: 20030101, end: 20040616
  2. PROMETAX [Suspect]
     Dosage: 3 MG, BID
     Route: 048
  3. RIGENTEX [Concomitant]
     Indication: DEMENTIA ALZHEIMER'S TYPE
     Dosage: 400 MG/D
     Route: 048
     Dates: start: 20030101, end: 20040616
  4. ZYPREXA [Concomitant]
     Indication: DEMENTIA ALZHEIMER'S TYPE
     Dosage: 2.5MG/D
     Route: 048
     Dates: start: 20030101, end: 20040616
  5. SEROPRAM [Concomitant]
     Indication: DEMENTIA ALZHEIMER'S TYPE
     Dosage: 20 MG/D
     Route: 048
     Dates: start: 20030101, end: 20040616
  6. XATRAL [Concomitant]
     Indication: DEMENTIA ALZHEIMER'S TYPE
     Dosage: 205 MG/D
     Route: 048
     Dates: start: 20030101, end: 20040616

REACTIONS (1)
  - JAUNDICE [None]
